FAERS Safety Report 8492169-7 (Version None)
Quarter: 2012Q3

REPORT INFORMATION
  Report Type: 
  Country: None (occurrence: None)
  Receive Date: 20120706
  Receipt Date: 20120703
  Transmission Date: 20120928
  Serious: No
  Sender: FDA-Public Use
  Company Number: US-PFIZER INC-2012159770

PATIENT
  Sex: Female
  Weight: 77 kg

DRUGS (5)
  1. ATIVAN [Concomitant]
     Dosage: UNK
  2. POTASSIUM [Concomitant]
     Dosage: UNK
  3. SERTRALINE HYDROCHLORIDE [Suspect]
     Indication: DEPRESSION
     Dosage: TWO 100MG, 1X/DAY
     Route: 048
     Dates: start: 20120101
  4. SEROQUEL [Concomitant]
     Dosage: UNK
  5. AMANTADINE [Concomitant]
     Dosage: UNK

REACTIONS (1)
  - MEDICATION RESIDUE [None]
